FAERS Safety Report 7898723-5 (Version None)
Quarter: 2011Q4

REPORT INFORMATION
  Report Type: 
  Country: None (occurrence: None)
  Receive Date: 20111107
  Receipt Date: 20110719
  Transmission Date: 20120403
  Serious: No
  Sender: FDA-Public Use
  Company Number: US-ABBOTT-11P-163-0840430-00

PATIENT
  Sex: Female
  Weight: 83.99 kg

DRUGS (8)
  1. TRICOR [Suspect]
     Dosage: THE PATIENT CUT THE PILL IN HALF AND TOOK ONLY HALF OF THE PILL EACH DAY.
     Dates: start: 20110325, end: 20110415
  2. ACTONEL [Concomitant]
     Indication: OSTEOPOROSIS
  3. TRICOR [Suspect]
     Dates: start: 20110401
  4. ASPIRIN [Concomitant]
     Indication: CARDIAC DISORDER
  5. COREG [Concomitant]
     Indication: HYPERTENSION
  6. ASPIRIN [Concomitant]
     Indication: PROPHYLAXIS
  7. TRICOR [Suspect]
     Indication: BLOOD CHOLESTEROL INCREASED
     Dates: start: 20041001, end: 20110324
  8. PLAVIX [Concomitant]
     Indication: PRODUCT USED FOR UNKNOWN INDICATION

REACTIONS (4)
  - WRONG TECHNIQUE IN DRUG USAGE PROCESS [None]
  - OCULAR ICTERUS [None]
  - NAUSEA [None]
  - DRUG ADMINISTRATION ERROR [None]
